FAERS Safety Report 7247818-8 (Version None)
Quarter: 2011Q1

REPORT INFORMATION
  Report Type: 
  Country: None (occurrence: None)
  Receive Date: 20110127
  Receipt Date: 20110120
  Transmission Date: 20110831
  Serious: Yes (Other)
  Sender: FDA-Public Use
  Company Number: IT-PFIZER INC-2011016095

PATIENT
  Age: 79 Year
  Sex: Female

DRUGS (2)
  1. LANSOPRAZOLE [Suspect]
     Dosage: UNK
  2. CELECOXIB [Suspect]

REACTIONS (1)
  - COLITIS [None]
